FAERS Safety Report 5935940-5 (Version None)
Quarter: 2008Q4

REPORT INFORMATION
  Report Type: 
  Country: None (occurrence: None)
  Receive Date: 20081030
  Receipt Date: 20081023
  Transmission Date: 20090506
  Serious: Yes (Other)
  Sender: FDA-Public Use
  Company Number: US-ELI_LILLY_AND_COMPANY-US200810005631

PATIENT
  Age: 65 Year
  Sex: Male

DRUGS (6)
  1. HUMULIN N [Suspect]
     Indication: DIABETES MELLITUS
     Dosage: UNK, UNK
     Dates: start: 19880101
  2. HUMULIN R [Suspect]
     Indication: DIABETES MELLITUS
     Dosage: UNK, UNK
     Dates: start: 20081001
  3. METRONIDAZOLE [Concomitant]
     Dosage: 250 MG, 3/D
  4. ZINC SULFATE [Concomitant]
  5. FUROSEMIDE [Concomitant]
     Dosage: 20 MG, DAILY (1/D)
  6. NADOLOL [Concomitant]
     Dosage: 80 MG, DAILY (1/D)

REACTIONS (10)
  - ANOREXIA [None]
  - CEREBROVASCULAR ACCIDENT [None]
  - CHOKING [None]
  - DIARRHOEA [None]
  - DYSPHAGIA [None]
  - HEPATIC CIRRHOSIS [None]
  - MENTAL IMPAIRMENT [None]
  - OPERATIVE HAEMORRHAGE [None]
  - VARICES OESOPHAGEAL [None]
  - WEIGHT DECREASED [None]
